FAERS Safety Report 21989282 (Version 2)
Quarter: 2023Q2

REPORT INFORMATION
  Report Type: Spontaneous
  Country: JP (occurrence: None)
  Receive Date: 20230214
  Receipt Date: 20230411
  Transmission Date: 20230722
  Serious: Yes (Hospitalization, Other)
  Sender: FDA-Public Use
  Company Number: 2023A034498

PATIENT
  Age: 89 Year
  Sex: Female

DRUGS (8)
  1. TAGRISSO [Suspect]
     Active Substance: OSIMERTINIB
     Indication: Non-small cell lung cancer
     Route: 048
     Dates: start: 20190328, end: 20201118
  2. TAGRISSO [Suspect]
     Active Substance: OSIMERTINIB
     Indication: Non-small cell lung cancer
     Route: 048
     Dates: end: 20210310
  3. TAGRISSO [Suspect]
     Active Substance: OSIMERTINIB
     Indication: Non-small cell lung cancer
     Dosage: AFTER LUNCH
     Route: 048
     Dates: start: 20221207, end: 20230104
  4. VASOLAN [Concomitant]
     Dosage: DOSE UNKNOWN, AFTER MEALS, PRESCRIBED FROM ANOTHER HOSPITAL
     Route: 048
  5. DIETARY SUPPLEMENT\PROBIOTICS [Concomitant]
     Active Substance: DIETARY SUPPLEMENT\PROBIOTICS NOS
     Dosage: DOSE UNKNOWN, PRESCRIBED FROM ANOTHER HOSPITAL
     Route: 065
  6. EVISTA [Concomitant]
     Active Substance: RALOXIFENE HYDROCHLORIDE
     Dosage: DOSE UNKNOWN, AFTER BREAKFAST, PRESCRIBED FROM ANOTHER HOSPITAL
     Route: 065
  7. CONSTAN [Concomitant]
     Dosage: DOSE UNKNOWN, PRESCRIBED FROM ANOTHER HOSPITAL
     Route: 065
  8. MARZULENE [Concomitant]
     Dosage: DOSE UNKNOWN, PRESCRIBED FROM ANOTHER HOSPITAL
     Route: 065

REACTIONS (6)
  - Small intestinal haemorrhage [Unknown]
  - Postoperative wound infection [Unknown]
  - Palpitations [Unknown]
  - Dyspnoea [Unknown]
  - Loss of consciousness [Unknown]
  - Off label use [Unknown]

NARRATIVE: CASE EVENT DATE: 20230104
